FAERS Safety Report 13903976 (Version 1)
Quarter: 2017Q3

REPORT INFORMATION
  Report Type: Spontaneous
  Country: DE (occurrence: DE)
  Receive Date: 20170824
  Receipt Date: 20170824
  Transmission Date: 20171127
  Serious: Yes (Other)
  Sender: FDA-Public Use
  Company Number: DE-MYLANLABS-2017M1052698

PATIENT

DRUGS (1)
  1. FORMOTOP NOVOLIZER [Suspect]
     Active Substance: FORMOTEROL FUMARATE
     Indication: PRODUCT USED FOR UNKNOWN INDICATION
     Dosage: 6 MG, TAKING FROM LONGER TIME
     Route: 065

REACTIONS (1)
  - Condition aggravated [Unknown]
